FAERS Safety Report 6158362-3 (Version None)
Quarter: 2009Q2

REPORT INFORMATION
  Report Type: 
  Country: None (occurrence: None)
  Receive Date: 20090414
  Receipt Date: 20090414
  Transmission Date: 20091009
  Serious: Yes (Hospitalization)
  Sender: FDA-Public Use
  Company Number: None

PATIENT

DRUGS (1)
  1. SORAFENIB 400MG DAILY [Suspect]
     Indication: SARCOMA UTERUS
     Dosage: 400MG DAILY P.O. NEVER USED
     Route: 048

REACTIONS (5)
  - LARGE INTESTINAL OBSTRUCTION [None]
  - METASTASES TO SMALL INTESTINE [None]
  - NEOPLASM RECURRENCE [None]
  - RECTAL HAEMORRHAGE [None]
  - SARCOMA UTERUS [None]
